FAERS Safety Report 19096428 (Version 5)
Quarter: 2021Q2

REPORT INFORMATION
  Report Type: Report from Study
  Country: US (occurrence: US)
  Receive Date: 20210406
  Receipt Date: 20210426
  Transmission Date: 20210717
  Serious: No
  Sender: FDA-Public Use
  Company Number: NVSC2021US073776

PATIENT
  Sex: Female

DRUGS (3)
  1. PIQRAY [Suspect]
     Active Substance: ALPELISIB
     Indication: BREAST CANCER
     Dosage: 300 MG, QD
     Route: 048
  2. PIQRAY [Suspect]
     Active Substance: ALPELISIB
     Dosage: 300 MG
     Route: 048
  3. PIQRAY [Suspect]
     Active Substance: ALPELISIB
     Dosage: 250 MG
     Route: 065

REACTIONS (3)
  - Blood glucose increased [Unknown]
  - Hyperglycaemia [Unknown]
  - Thirst [Unknown]
